FAERS Safety Report 13092920 (Version 1)
Quarter: 2017Q1

REPORT INFORMATION
  Report Type: Spontaneous
  Country: US (occurrence: US)
  Receive Date: 20170105
  Receipt Date: 20170105
  Transmission Date: 20170428
  Serious: Yes (Disabling)
  Sender: FDA-Public Use
  Company Number: None

PATIENT
  Age: 53 Year
  Sex: Female
  Weight: 56.7 kg

DRUGS (8)
  1. MODAFINIL 100MG [Suspect]
     Active Substance: MODAFINIL
     Indication: MULTIPLE SCLEROSIS
     Dosage: ?          QUANTITY:1 TABLET(S);?
     Route: 048
     Dates: start: 20161210, end: 20170101
  2. TRIAMTERENE AND HYDROCHLOROTHIAZIDE [Concomitant]
     Active Substance: HYDROCHLOROTHIAZIDE\TRIAMTERENE
  3. ASPIRIN. [Concomitant]
     Active Substance: ASPIRIN
  4. CALCIUM SUPPLEMENT [Concomitant]
     Active Substance: CALCIUM
  5. MODAFINIL 100MG [Suspect]
     Active Substance: MODAFINIL
     Indication: FATIGUE
     Dosage: ?          QUANTITY:1 TABLET(S);?
     Route: 048
     Dates: start: 20161210, end: 20170101
  6. PEPCID [Concomitant]
     Active Substance: FAMOTIDINE
  7. AZOPT [Concomitant]
     Active Substance: BRINZOLAMIDE
  8. VITAMIN E SUPPLEMENT [Concomitant]

REACTIONS (3)
  - Dizziness [None]
  - Swelling [None]
  - Product substitution issue [None]

NARRATIVE: CASE EVENT DATE: 20161210
